FAERS Safety Report 16804105 (Version 1)
Quarter: 2019Q3

REPORT INFORMATION
  Report Type: Spontaneous
  Country: US (occurrence: US)
  Receive Date: 20190913
  Receipt Date: 20190913
  Transmission Date: 20191005
  Serious: No
  Sender: FDA-Public Use
  Company Number: US-BAYER-2019-168377

PATIENT
  Sex: Male

DRUGS (1)
  1. MIRALAX [Suspect]
     Active Substance: POLYETHYLENE GLYCOL 3350
     Indication: INTESTINAL OBSTRUCTION
     Dosage: UNK
     Dates: start: 2019

REACTIONS (2)
  - Drug effective for unapproved indication [None]
  - Product use issue [None]

NARRATIVE: CASE EVENT DATE: 2019
